FAERS Safety Report 4407465-X (Version None)
Quarter: 2004Q3

REPORT INFORMATION
  Report Type: 
  Country: None (occurrence: None)
  Receive Date: 20040721
  Receipt Date: 20040630
  Transmission Date: 20050211
  Serious: Yes (Hospitalization, Other)
  Sender: FDA-Public Use
  Company Number: USA040771548

PATIENT
  Age: 54 Year
  Sex: Female
  Weight: 91 kg

DRUGS (17)
  1. HUMALOG [Suspect]
     Indication: DIABETES MELLITUS
     Dosage: 30 U/3 DAY
     Dates: start: 20040201
  2. HUMULIN R [Suspect]
     Indication: DIABETES MELLITUS
     Dates: start: 19880101
  3. HUMULIN N [Suspect]
     Indication: DIABETES MELLITUS
     Dates: start: 19880101
  4. HUMULIN-HUMAN INSULIN (RDNA): 30% REGULAR, 70% NPH (H [Suspect]
     Indication: DIABETES MELLITUS
  5. HUMULIN 50/50 [Suspect]
     Indication: DIABETES MELLITUS
  6. GLUCOPHAGE [Concomitant]
  7. TOPROL-XL [Concomitant]
  8. ALTACE [Concomitant]
  9. LASIX [Concomitant]
  10. ZANTAC [Concomitant]
  11. ASPIRIN [Concomitant]
  12. NITROBID (NITROFURANTOIN) [Concomitant]
  13. VERAPAMIL [Concomitant]
  14. ELAVIL [Concomitant]
  15. STOOL SOFTENER (DOCUSATE SODIUM) [Concomitant]
  16. HYDROCODONE [Concomitant]
  17. LANTUS [Concomitant]

REACTIONS (16)
  - ABSCESS [None]
  - BLISTER [None]
  - BLOOD GLUCOSE INCREASED [None]
  - CARDIAC FAILURE CONGESTIVE [None]
  - DIABETIC NEUROPATHY [None]
  - FEELING ABNORMAL [None]
  - FOLLICULITIS [None]
  - GASTROOESOPHAGEAL REFLUX DISEASE [None]
  - HEPATIC STEATOSIS [None]
  - INSULIN RESISTANCE [None]
  - MEMORY IMPAIRMENT [None]
  - MOBILITY DECREASED [None]
  - MYOCARDIAL INFARCTION [None]
  - NAIL DISORDER [None]
  - RASH ERYTHEMATOUS [None]
  - RENAL DISORDER [None]
